FAERS Safety Report 8073025-5 (Version None)
Quarter: 2011Q4

REPORT INFORMATION
  Report Type: 
  Country: None (occurrence: None)
  Receive Date: 20111221
  Receipt Date: 20110131
  Transmission Date: 20120403
  Serious: Yes (Life-Threatening, Hospitalization, Other)
  Sender: FDA-Public Use
  Company Number: PHHY2008US37162

PATIENT
  Sex: Male

DRUGS (2)
  1. EXJADE [Suspect]
     Indication: SICKLE CELL ANAEMIA
     Dosage: 500 MG
  2. DIURETICS (NO INGREDIENTS/SUBSTANCES) [Concomitant]

REACTIONS (7)
  - ARTHRALGIA [None]
  - OEDEMA [None]
  - URINE OUTPUT DECREASED [None]
  - BLOOD CREATININE INCREASED [None]
  - LETHARGY [None]
  - RENAL FAILURE ACUTE [None]
  - RENAL DISORDER [None]
